FAERS Safety Report 23691377 (Version 2)
Quarter: 2024Q2

REPORT INFORMATION
  Report Type: Spontaneous
  Country: FR (occurrence: FR)
  Receive Date: 20240401
  Receipt Date: 20240422
  Transmission Date: 20240715
  Serious: Yes (Hospitalization)
  Sender: FDA-Public Use
  Company Number: None

PATIENT
  Age: 74 Year
  Sex: Male
  Weight: 73 kg

DRUGS (16)
  1. IMBRUVICA [Suspect]
     Active Substance: IBRUTINIB
     Indication: Central nervous system lymphoma
     Dosage: 560 MG PAR JOUR
     Route: 048
     Dates: start: 20231129, end: 20231227
  2. IMBRUVICA [Suspect]
     Active Substance: IBRUTINIB
     Indication: Central nervous system lymphoma
     Dosage: 560 MG PAR JOUR EN CONTINU
     Route: 048
     Dates: start: 20240202, end: 20240222
  3. IMBRUVICA [Suspect]
     Active Substance: IBRUTINIB
     Indication: Central nervous system lymphoma
     Dosage: 420 MG PER DAY CONTINUOUSLY
     Route: 048
     Dates: start: 20231227, end: 20240126
  4. BACTRIM [Concomitant]
     Active Substance: SULFAMETHOXAZOLE\TRIMETHOPRIM
     Indication: Infection prophylaxis
     Dates: start: 20231214
  5. ATOVAQUONE [Concomitant]
     Active Substance: ATOVAQUONE
     Indication: Product used for unknown indication
  6. FUROSEMIDE [Suspect]
     Active Substance: FUROSEMIDE
     Indication: Oedema peripheral
     Dosage: 20 MG PER HOUR
     Route: 048
     Dates: start: 20240123, end: 20240130
  7. LENALIDOMIDE [Suspect]
     Active Substance: LENALIDOMIDE
     Indication: Central nervous system lymphoma
     Dosage: 25 MG PER DAY FOR 21 DAYS
     Route: 048
     Dates: start: 20231227, end: 20240117
  8. LENALIDOMIDE [Suspect]
     Active Substance: LENALIDOMIDE
     Indication: Central nervous system lymphoma
     Dosage: 25 MG PAR JOUR PENDANT 20 JOURS
     Route: 048
     Dates: start: 20240202, end: 20240222
  9. LENALIDOMIDE [Suspect]
     Active Substance: LENALIDOMIDE
     Indication: Central nervous system lymphoma
     Dosage: 20 MG PAR JOUR PENDANT 21 JOURS, ARR?T PR?COCE
     Route: 048
     Dates: start: 20231129, end: 20231218
  10. VALACYCLOVIR HYDROCHLORIDE [Concomitant]
     Active Substance: VALACYCLOVIR HYDROCHLORIDE
     Indication: Infection prophylaxis
  11. RITUXIMAB [Suspect]
     Active Substance: RITUXIMAB
     Indication: Central nervous system lymphoma
     Dosage: UNE INJECTION DE 660 MG A J1C3
     Route: 042
     Dates: start: 20240202, end: 20240202
  12. RITUXIMAB [Suspect]
     Active Substance: RITUXIMAB
     Indication: Central nervous system lymphoma
     Dosage: UNE INJECTION DE 650 MG A J1C1
     Route: 042
     Dates: start: 20231129, end: 20231129
  13. RITUXIMAB [Suspect]
     Active Substance: RITUXIMAB
     Indication: Central nervous system lymphoma
     Dosage: AN INJECTION OF 650 MG ON D8C1
     Route: 042
     Dates: start: 20231206, end: 20231206
  14. RITUXIMAB [Suspect]
     Active Substance: RITUXIMAB
     Indication: Central nervous system lymphoma
     Dosage: UNE INJECTION DE 660 MG A J1C2
     Route: 042
     Dates: start: 20231227, end: 20231227
  15. RITUXIMAB [Suspect]
     Active Substance: RITUXIMAB
     Indication: Central nervous system lymphoma
     Dosage: UNE INJECTION DE 650 MG A J15C1
     Route: 042
     Dates: start: 20231213, end: 20231213
  16. RITUXIMAB [Suspect]
     Active Substance: RITUXIMAB
     Indication: Central nervous system lymphoma
     Dosage: UNE INJECTION DE 650 MG A J22C1
     Route: 042
     Dates: start: 20231220, end: 20231220

REACTIONS (1)
  - Drug reaction with eosinophilia and systemic symptoms [Recovering/Resolving]

NARRATIVE: CASE EVENT DATE: 20240222
